FAERS Safety Report 6008477-5 (Version None)
Quarter: 2008Q4

REPORT INFORMATION
  Report Type: 
  Country: None (occurrence: None)
  Receive Date: 20081217
  Receipt Date: 20081209
  Transmission Date: 20090506
  Serious: Yes (Hospitalization)
  Sender: FDA-Public Use
  Company Number: CH-GILEAD-2008-0019426

PATIENT
  Age: 24 Year
  Sex: Female

DRUGS (6)
  1. TRUVADA [Suspect]
     Indication: HIV INFECTION
     Dates: start: 20081103
  2. TRUVADA [Suspect]
     Route: 048
     Dates: start: 20080801, end: 20080901
  3. VIRAMUNE [Concomitant]
     Indication: HIV INFECTION
     Route: 048
     Dates: start: 20080801, end: 20080901
  4. INTELENCE [Concomitant]
     Indication: HIV INFECTION
     Route: 048
     Dates: start: 20081103, end: 20081104
  5. EFFEXOR [Concomitant]
     Dates: start: 20080601
  6. ZYPREXA [Concomitant]
     Route: 048
     Dates: start: 20080601

REACTIONS (5)
  - EOSINOPHILIA [None]
  - HYPERSENSITIVITY [None]
  - LIVER INJURY [None]
  - PYREXIA [None]
  - TOXIC SKIN ERUPTION [None]
